FAERS Safety Report 14026677 (Version 1)
Quarter: 2017Q3

REPORT INFORMATION
  Report Type: Not Available
  Country: DE (occurrence: DE)
  Receive Date: 20170929
  Receipt Date: 20170929
  Transmission Date: 20171128
  Serious: Yes (Death)
  Sender: FDA-Public Use
  Company Number: DE-ANIPHARMA-2017-DE-000036

PATIENT
  Age: 56 Year
  Sex: Male
  Weight: 120 kg

DRUGS (8)
  1. FLUPHENAZINE [Suspect]
     Active Substance: FLUPHENAZINE
  2. PIMOZIDE. [Suspect]
     Active Substance: PIMOZIDE
  3. HALOPERIDOL. [Suspect]
     Active Substance: HALOPERIDOL
  4. AMITRIPTYLINE (NON-SPECIFIC) [Suspect]
     Active Substance: AMITRIPTYLINE
  5. BIPERIDEN [Suspect]
     Active Substance: BIPERIDEN
  6. LITHIUM CARBONATE (NON-SPECIFIC) [Suspect]
     Active Substance: LITHIUM
     Dosage: 225MG/DAY
  7. LEVOMEPROMAZINE [Suspect]
     Active Substance: LEVOMEPROMAZINE
     Dosage: 300MG/DAY
  8. THIORIDAZINE [Suspect]
     Active Substance: THIORIDAZINE

REACTIONS (4)
  - Megacolon [Fatal]
  - Circulatory collapse [Fatal]
  - Death [Fatal]
  - Ileus paralytic [Fatal]
